FAERS Safety Report 6929691-8 (Version None)
Quarter: 2010Q3

REPORT INFORMATION
  Report Type: 
  Country: None (occurrence: None)
  Receive Date: 20100818
  Receipt Date: 20100809
  Transmission Date: 20110219
  Serious: No
  Sender: FDA-Public Use
  Company Number: US-NOVOPROD-311591

PATIENT
  Sex: Male
  Weight: 106.6 kg

DRUGS (6)
  1. LIRAGLUTIDE FLEXPEN [Suspect]
     Indication: TYPE 2 DIABETES MELLITUS
     Dosage: 1.8 MG, QD
     Route: 058
     Dates: start: 20090714, end: 20100701
  2. METFORMIN [Concomitant]
     Indication: TYPE 2 DIABETES MELLITUS
     Dosage: 1500 MG, QD
     Route: 048
     Dates: start: 20090325
  3. DIOVAN HCT [Concomitant]
     Indication: HYPERTENSION
     Dosage: 1 TAB (160/25 MG), QD
     Route: 048
     Dates: start: 20090618
  4. ASPIRIN [Concomitant]
     Indication: PROPHYLAXIS
     Dosage: 81 MG, QD
     Route: 048
     Dates: start: 20100406
  5. TUMS                               /00108001/ [Concomitant]
     Indication: FLATULENCE
     Dosage: 2 TAB, PRN
     Route: 048
     Dates: start: 20100515
  6. NEXIUM [Concomitant]
     Indication: PRODUCT USED FOR UNKNOWN INDICATION
     Dosage: 40 MG, QD
     Route: 048
     Dates: start: 20100701

REACTIONS (1)
  - PANCREATITIS [None]
